FAERS Safety Report 19006034 (Version 2)
Quarter: 2021Q3

REPORT INFORMATION
  Report Type: Spontaneous
  Country: PK (occurrence: PK)
  Receive Date: 20210314
  Receipt Date: 20210701
  Transmission Date: 20211014
  Serious: Yes (Hospitalization)
  Sender: FDA-Public Use
  Company Number: PK-AMGEN-PAKSP2020072832

PATIENT
  Age: 12 Year
  Sex: Male
  Weight: 27 kg

DRUGS (7)
  1. PREDNISOLONE. [Concomitant]
     Active Substance: PREDNISOLONE
     Dosage: 7.5 MILLIGRAM, QD
  2. ENBREL [Suspect]
     Active Substance: ETANERCEPT
     Dosage: 50 MILLIGRAM, QWK
     Route: 058
  3. PREDNISOLONE. [Concomitant]
     Active Substance: PREDNISOLONE
     Dosage: 5 MILLIGRAM, QD
  4. DELTACORTRIL [Concomitant]
     Active Substance: PREDNISOLONE
     Dosage: 1.5 DF, DAILY (1+1/2 TABLET DAILY AFTER BREAKFAST)
  5. D MAX [Concomitant]
     Dosage: 1 DOSAGE FORM, BID
  6. ENBREL [Suspect]
     Active Substance: ETANERCEPT
     Indication: JUVENILE IDIOPATHIC ARTHRITIS
     Dosage: UNK UNK, QWK
     Route: 058
  7. PROXEN [NAPROXEN] [Concomitant]
     Indication: PAIN
     Dosage: 250 MG, 1X/DAY (1 TABLET ONCE A DAY FOR PAIN: TAKE IT WITH FOOD)

REACTIONS (6)
  - Cushingoid [Unknown]
  - Pyrexia [Recovered/Resolved]
  - Pain [Recovered/Resolved]
  - Body height abnormal [Unknown]
  - Off label use [Unknown]
  - Fall [Unknown]
